FAERS Safety Report 15820889 (Version 1)
Quarter: 2019Q1

REPORT INFORMATION
  Report Type: Spontaneous
  Country: US (occurrence: US)
  Receive Date: 20190114
  Receipt Date: 20190114
  Transmission Date: 20190417
  Serious: No
  Sender: FDA-Public Use
  Company Number: US-GUERBET-US-20180176

PATIENT
  Sex: Female

DRUGS (1)
  1. DOTAREM [Suspect]
     Active Substance: GADOTERATE MEGLUMINE
     Indication: NUCLEAR MAGNETIC RESONANCE IMAGING
     Route: 042
     Dates: start: 20180627, end: 20180627

REACTIONS (7)
  - Nausea [Unknown]
  - Ocular hyperaemia [Unknown]
  - Accidental exposure to product [Unknown]
  - Eye irritation [Unknown]
  - Vision blurred [Unknown]
  - Product use in unapproved indication [Unknown]
  - Accidental underdose [Unknown]

NARRATIVE: CASE EVENT DATE: 20180627
